FAERS Safety Report 14123653 (Version 2)
Quarter: 2017Q4

REPORT INFORMATION
  Report Type: Report from Study
  Country: None (occurrence: US)
  Receive Date: 20171025
  Receipt Date: 20171101
  Transmission Date: 20180321
  Serious: Yes (Other)
  Sender: FDA-Public Use
  Company Number: US-ABBVIE-17K-163-2082158-00

PATIENT
  Sex: Male
  Weight: 98.06 kg

DRUGS (1)
  1. HUMIRA [Suspect]
     Active Substance: ADALIMUMAB
     Indication: PSORIATIC ARTHROPATHY
     Route: 058
     Dates: start: 201404

REACTIONS (4)
  - Pachymeningitis [Unknown]
  - Fatigue [Recovering/Resolving]
  - Cerebrospinal fluid leakage [Recovering/Resolving]
  - Facial bones fracture [Unknown]
